FAERS Safety Report 8949819 (Version 2)
Quarter: 2013Q1

REPORT INFORMATION
  Report Type: Spontaneous
  Country: SE (occurrence: SE)
  Receive Date: 20121206
  Receipt Date: 20130301
  Transmission Date: 20140127
  Serious: Yes (Hospitalization, Other)
  Sender: FDA-Public Use
  Company Number: SE-B.I. PHARMACEUTICALS,INC./RIDGEFIELD-2012-SW-00894SW

PATIENT
  Age: 81 Year
  Sex: Female

DRUGS (8)
  1. PRADAXA [Suspect]
     Indication: CEREBROVASCULAR ACCIDENT PROPHYLAXIS
     Dosage: 300 MG
     Dates: end: 201211
  2. PRADAXA [Suspect]
     Indication: ATRIAL FIBRILLATION
  3. CALCICHEW D3 [Concomitant]
     Indication: OSTEOPOROSIS
  4. FURIX [Concomitant]
     Indication: DIURETIC THERAPY
     Dosage: 40 MG
  5. BISOPROLOL [Concomitant]
     Indication: ATRIAL FIBRILLATION
  6. LEVAXIN [Concomitant]
     Indication: THYROID THERAPY
  7. SPIRIVA [Concomitant]
     Indication: CHRONIC OBSTRUCTIVE PULMONARY DISEASE
  8. SIMVASTATIN [Concomitant]
     Indication: HYPERLIPIDAEMIA
     Dosage: 40 MG

REACTIONS (2)
  - Polymyositis [Not Recovered/Not Resolved]
  - Lung neoplasm malignant [Recovered/Resolved]
